FAERS Safety Report 9307059 (Version 1)
Quarter: 2013Q2

REPORT INFORMATION
  Report Type: Spontaneous
  Country: US (occurrence: US)
  Receive Date: 20130523
  Receipt Date: 20130523
  Transmission Date: 20140414
  Serious: Yes (Hospitalization, Other)
  Sender: FDA-Public Use
  Company Number: US-ELI_LILLY_AND_COMPANY-US201301007809

PATIENT
  Age: 77 Year
  Sex: Female

DRUGS (15)
  1. FORTEO [Suspect]
     Indication: OSTEOPOROSIS
     Dosage: 20 UG, QD
     Route: 065
     Dates: start: 201210
  2. FORTEO [Suspect]
     Dosage: 20 UG, QD
     Route: 065
     Dates: end: 201301
  3. OXYGEN [Concomitant]
  4. THEOPHYLLIN [Concomitant]
     Dosage: UNK
  5. ALLOPURINOL [Concomitant]
     Dosage: UNK
  6. LASIX [Concomitant]
     Dosage: UNK
  7. PLAVIX [Concomitant]
     Dosage: UNK
  8. LANOXIN [Concomitant]
     Dosage: UNK
  9. DIOVAN [Concomitant]
     Dosage: UNK
  10. NITROBID [Concomitant]
     Dosage: UNK
  11. XANAX [Concomitant]
     Dosage: UNK
  12. LORCET [Concomitant]
     Dosage: UNK
  13. LACTULOSE [Concomitant]
     Dosage: UNK
  14. ASPIRIN [Concomitant]
     Dosage: UNK
  15. CLONAZEPAM [Concomitant]
     Dosage: UNK

REACTIONS (7)
  - Bladder neoplasm [Unknown]
  - Metastases to lymph nodes [Unknown]
  - Metastasis [Unknown]
  - Respiratory disorder [Recovered/Resolved]
  - Musculoskeletal disorder [Unknown]
  - Pain in extremity [Unknown]
  - Blood urine present [Unknown]
